FAERS Safety Report 5239836-6 (Version None)
Quarter: 2007Q1

REPORT INFORMATION
  Report Type: 
  Country: None (occurrence: None)
  Receive Date: 20070214
  Receipt Date: 20070214
  Transmission Date: 20070707
  Serious: Yes (Hospitalization)
  Sender: FDA-Public Use
  Company Number: None

PATIENT
  Sex: Male

DRUGS (7)
  1. LISINOPRIL [Suspect]
     Indication: CARDIAC FAILURE CONGESTIVE
     Dosage: 10 MG DAILY PO
     Route: 048
  2. ALBUTEROL [Concomitant]
  3. FUROSEMIDE [Concomitant]
  4. IPRATROPIUM BROMIDE [Concomitant]
  5. INSULIN [Concomitant]
  6. LORATADINE [Concomitant]
  7. ACETAMINOPHEN [Concomitant]

REACTIONS (2)
  - ELECTROCARDIOGRAM CHANGE [None]
  - HYPERKALAEMIA [None]
